FAERS Safety Report 19824325 (Version 2)
Quarter: 2022Q2

REPORT INFORMATION
  Report Type: Spontaneous
  Country: US (occurrence: None)
  Receive Date: 20210913
  Receipt Date: 20220428
  Transmission Date: 20220721
  Serious: No
  Sender: FDA-Public Use
  Company Number: 2021A699365

PATIENT
  Sex: Female
  Weight: 49.9 kg

DRUGS (1)
  1. CALQUENCE [Suspect]
     Active Substance: ACALABRUTINIB
     Indication: Chronic lymphocytic leukaemia
     Route: 048

REACTIONS (4)
  - Irritable bowel syndrome [Unknown]
  - Procedural haemorrhage [Unknown]
  - Contusion [Recovering/Resolving]
  - Headache [Unknown]
